FAERS Safety Report 8606048-5 (Version None)
Quarter: 2012Q3

REPORT INFORMATION
  Report Type: 
  Country: None (occurrence: None)
  Receive Date: 20120820
  Receipt Date: 20120810
  Transmission Date: 20120928
  Serious: Yes (Hospitalization)
  Sender: FDA-Public Use
  Company Number: US-ABBOTT-12P-163-0967825-00

PATIENT
  Sex: Female
  Weight: 74.91 kg

DRUGS (4)
  1. VITAMIN D [Concomitant]
     Indication: PRODUCT USED FOR UNKNOWN INDICATION
  2. HUMIRA [Suspect]
     Indication: CROHN'S DISEASE
     Route: 058
     Dates: start: 20110701, end: 20111227
  3. ASACOL [Concomitant]
     Indication: CROHN'S DISEASE
  4. HUMIRA [Suspect]
     Route: 058
     Dates: start: 20120125, end: 20120201

REACTIONS (17)
  - ARTHRALGIA [None]
  - INTESTINAL PROLAPSE [None]
  - CROHN'S DISEASE [None]
  - GASTROINTESTINAL ANASTOMOTIC LEAK [None]
  - SPINAL DISORDER [None]
  - BACK INJURY [None]
  - BACK PAIN [None]
  - PALLOR [None]
  - STAPHYLOCOCCAL INFECTION [None]
  - PAIN [None]
  - FATIGUE [None]
  - ILEAL FISTULA [None]
  - PARASPINAL ABSCESS [None]
  - BLOOD COUNT ABNORMAL [None]
  - NODULE [None]
  - JOINT ABSCESS [None]
  - PELVIC ABSCESS [None]
